FAERS Safety Report 6814352-6 (Version None)
Quarter: 2010Q3

REPORT INFORMATION
  Report Type: 
  Country: None (occurrence: None)
  Receive Date: 20100702
  Receipt Date: 20100623
  Transmission Date: 20110219
  Serious: Yes (Other)
  Sender: FDA-Public Use
  Company Number: CA-JNJFOC-20100607888

PATIENT
  Sex: Female
  Weight: 48 kg

DRUGS (1)
  1. REMICADE [Suspect]
     Indication: PSORIASIS
     Route: 042

REACTIONS (1)
  - SYNCOPE [None]
